FAERS Safety Report 7345712-5 (Version None)
Quarter: 2011Q1

REPORT INFORMATION
  Report Type: 
  Country: None (occurrence: None)
  Receive Date: 20110310
  Receipt Date: 20110302
  Transmission Date: 20110831
  Serious: Yes (Hospitalization)
  Sender: FDA-Public Use
  Company Number: DE-BRISTOL-MYERS SQUIBB COMPANY-15574767

PATIENT
  Age: 60 Year
  Sex: Male

DRUGS (14)
  1. TAXOTERE [Suspect]
     Indication: GASTRIC CANCER
     Dosage: MOST RECENT 04FEB11
     Route: 042
     Dates: start: 20110204, end: 20110204
  2. METFORMIN [Concomitant]
     Dosage: METFORMIN 850
     Dates: start: 20110119
  3. MEROPENEM [Concomitant]
     Dosage: 1 DF=  HALF TAB MEROPENEM 100
     Dates: start: 20110119
  4. CETUXIMAB [Suspect]
     Indication: GASTRIC CANCER
     Dosage: MOST RECENT 18FEB2011,STRENGTH=2MG/ML
     Route: 042
     Dates: start: 20110204, end: 20110218
  5. DURAGESIC-100 [Concomitant]
     Dosage: 1 DF=50 UNITS NOS
     Dates: start: 20110119
  6. PERFALGAN [Concomitant]
     Dates: start: 20110119
  7. VEROSPIRON [Concomitant]
     Dosage: VEROSPIRON 25
     Dates: start: 20110119
  8. VALORON [Concomitant]
     Dosage: 1 DF= 100 UNITS NOS
     Dates: start: 20110119
  9. AMLODIPINE [Concomitant]
     Dosage: 1 DF= HALF TAB AMLODIPINE 5
     Dates: start: 20110119
  10. CISPLATIN [Suspect]
     Indication: GASTRIC CANCER
     Dosage: MOST RECENT 04FEB2011
     Route: 042
     Dates: start: 20110204, end: 20110204
  11. THYROXINE [Concomitant]
     Dosage: 1 DF= HALF TAB THYROXINE 50
     Dates: start: 20110119
  12. CLEXANE [Concomitant]
     Dosage: 1 DF=40 UNITS NOS
     Route: 058
     Dates: start: 20110119
  13. PANTOZOL [Concomitant]
     Dosage: PANTOZOL 40
     Dates: start: 20110119
  14. KARVEA [Concomitant]
     Dosage: KARVEA 300
     Dates: start: 20110119

REACTIONS (1)
  - IMPAIRED HEALING [None]
